FAERS Safety Report 4620892-0 (Version None)
Quarter: 2005Q1

REPORT INFORMATION
  Report Type: 
  Country: None (occurrence: None)
  Receive Date: 20050325
  Receipt Date: 20050314
  Transmission Date: 20050727
  Serious: Yes (Other)
  Sender: FDA-Public Use
  Company Number: 2005044721

PATIENT
  Age: 70 Year
  Sex: Female
  Weight: 64.8644 kg

DRUGS (2)
  1. XALATAN [Suspect]
     Dosage: OPHTHALMIC
     Route: 047
     Dates: start: 20040101
  2. GLIPIZIDE/METFORMIN HYDROCHLORIDE [Concomitant]

REACTIONS (2)
  - CATARACT [None]
  - WEIGHT DECREASED [None]
